FAERS Safety Report 25216007 (Version 1)
Quarter: 2025Q2

REPORT INFORMATION
  Report Type: Spontaneous
  Country: MY (occurrence: MY)
  Receive Date: 20250418
  Receipt Date: 20250418
  Transmission Date: 20250716
  Serious: Yes (Other)
  Sender: ROCHE
  Company Number: MY-BoehringerIngelheim-2025-BI-021136

PATIENT
  Age: 35 Year
  Sex: Male

DRUGS (1)
  1. ALTEPLASE [Suspect]
     Active Substance: ALTEPLASE
     Indication: Cerebrovascular accident
     Route: 042

REACTIONS (2)
  - Cerebral infarction [Unknown]
  - Cerebral microhaemorrhage [Unknown]
